FAERS Safety Report 4346808-2 (Version None)
Quarter: 2004Q2

REPORT INFORMATION
  Report Type: 
  Country: None (occurrence: None)
  Receive Date: 20040426
  Receipt Date: 20021209
  Transmission Date: 20050107
  Serious: Yes (Other)
  Sender: FDA-Public Use
  Company Number: US-MERCK-0212USA00854

PATIENT
  Age: 47 Year
  Sex: Female
  Weight: 65 kg

DRUGS (2)
  1. FOSAMAX [Suspect]
     Indication: OSTEOPENIA
     Route: 048
     Dates: start: 20021202, end: 20021220
  2. CALCIUM (UNSPECIFIED) [Concomitant]
     Route: 048

REACTIONS (19)
  - CHEILITIS [None]
  - DRUG ERUPTION [None]
  - DRUG HYPERSENSITIVITY [None]
  - EYE IRRITATION [None]
  - EYE PAIN [None]
  - EYE REDNESS [None]
  - FOOD ALLERGY [None]
  - HYPERSENSITIVITY [None]
  - LIP DRY [None]
  - LOCAL SWELLING [None]
  - NASAL DISCOMFORT [None]
  - PERIORBITAL OEDEMA [None]
  - PRURITUS [None]
  - RASH [None]
  - STOMATITIS [None]
  - SWELLING FACE [None]
  - VAGINAL PAIN [None]
  - VULVOVAGINAL DISCOMFORT [None]
  - VULVOVAGINAL DRYNESS [None]
